FAERS Safety Report 10190221 (Version 1)
Quarter: 2014Q2

REPORT INFORMATION
  Report Type: Spontaneous
  Country: AT (occurrence: AT)
  Receive Date: 20140522
  Receipt Date: 20140522
  Transmission Date: 20141212
  Serious: Yes (Other)
  Sender: FDA-Public Use
  Company Number: AT-EISAI INC-E2020-14036-SPO-AT

PATIENT
  Age: 84 Year
  Sex: Female
  Weight: 52 kg

DRUGS (11)
  1. ARICEPT [Suspect]
     Indication: PRODUCT USED FOR UNKNOWN INDICATION
     Route: 065
     Dates: start: 20070126, end: 20070206
  2. PANTOLOC [Suspect]
     Indication: PRODUCT USED FOR UNKNOWN INDICATION
     Route: 065
  3. SEROQUEL [Suspect]
     Indication: PRODUCT USED FOR UNKNOWN INDICATION
     Route: 065
     Dates: start: 20070122, end: 20070123
  4. SEROQUEL [Suspect]
     Route: 065
     Dates: start: 20070124, end: 20070125
  5. SEROQUEL [Suspect]
     Route: 065
     Dates: start: 20070126, end: 20070130
  6. DOMINAL [Suspect]
     Indication: PRODUCT USED FOR UNKNOWN INDICATION
     Route: 065
     Dates: start: 20070126
  7. RISPERDAL [Suspect]
     Indication: PRODUCT USED FOR UNKNOWN INDICATION
     Route: 048
     Dates: start: 20070131, end: 20070206
  8. LAEVOLAC [Concomitant]
  9. THYREX [Concomitant]
  10. FOSAMAX [Concomitant]
  11. KOMBI KALZ BEUTEL [Concomitant]

REACTIONS (5)
  - Leukopenia [Recovered/Resolved]
  - Hyponatraemia [Recovered/Resolved]
  - Decreased appetite [Recovered/Resolved]
  - Nausea [Recovered/Resolved]
  - Vomiting [Recovered/Resolved]
